FAERS Safety Report 20219945 (Version 2)
Quarter: 2022Q1

REPORT INFORMATION
  Report Type: Report from Study
  Country: CN (occurrence: CN)
  Receive Date: 20211222
  Receipt Date: 20220111
  Transmission Date: 20220423
  Serious: Yes (Death, Life-Threatening)
  Sender: FDA-Public Use
  Company Number: CN-JNJFOC-20211244910

PATIENT
  Age: 57 Year
  Sex: Female
  Weight: 51.5 kg

DRUGS (4)
  1. GUSELKUMAB [Suspect]
     Active Substance: GUSELKUMAB
     Indication: Colitis ulcerative
     Route: 042
     Dates: start: 20211213, end: 20211213
  2. GUSELKUMAB [Suspect]
     Active Substance: GUSELKUMAB
  3. SITAGLIPTIN [Concomitant]
     Active Substance: SITAGLIPTIN
     Indication: Diabetes mellitus
     Dates: end: 20211217
  4. PIOGLITAZONE [Concomitant]
     Active Substance: PIOGLITAZONE
     Indication: Diabetes mellitus
     Dates: end: 20211217

REACTIONS (1)
  - Acute myocardial infarction [Fatal]

NARRATIVE: CASE EVENT DATE: 20211218
